APPROVED DRUG PRODUCT: INTERMEZZO
Active Ingredient: ZOLPIDEM TARTRATE
Strength: 1.75MG
Dosage Form/Route: TABLET;SUBLINGUAL
Application: N022328 | Product #001
Applicant: PURDUE PHARMA PRODUCTS LP
Approved: Nov 23, 2011 | RLD: Yes | RS: No | Type: DISCN

PATENTS:
Patent 8242131 | Expires: Aug 20, 2029
Patent 7658945 | Expires: Apr 15, 2027